FAERS Safety Report 17194630 (Version 1)
Quarter: 2019Q4

REPORT INFORMATION
  Report Type: Spontaneous
  Country: PL (occurrence: PL)
  Receive Date: 20191224
  Receipt Date: 20191224
  Transmission Date: 20200122
  Serious: Yes (Other)
  Sender: FDA-Public Use
  Company Number: PL-TEVA-2019-PL-1155459

PATIENT
  Age: 43 Year
  Sex: Female

DRUGS (3)
  1. KWETAPLEX XR 200 MG [Suspect]
     Active Substance: QUETIAPINE FUMARATE
     Route: 065
  2. PRIDINOL ALVOGEN 5 MG [Suspect]
     Active Substance: PRIDINOL
  3. KWETAPLEX XR 300 MG [Suspect]
     Active Substance: QUETIAPINE FUMARATE
     Route: 065

REACTIONS (11)
  - Hypothermia [Unknown]
  - Constipation [Unknown]
  - Speech disorder [Unknown]
  - Vision blurred [Unknown]
  - Dizziness [Unknown]
  - High density lipoprotein decreased [Unknown]
  - Muscular weakness [Unknown]
  - Dyspnoea [Unknown]
  - Oliguria [Unknown]
  - Amenorrhoea [Unknown]
  - Movement disorder [Unknown]
